FAERS Safety Report 4356276-2 (Version None)
Quarter: 2004Q2

REPORT INFORMATION
  Report Type: 
  Country: None (occurrence: None)
  Receive Date: 20040510
  Receipt Date: 20040510
  Transmission Date: 20050107
  Serious: Yes (Life-Threatening, Hospitalization)
  Sender: FDA-Public Use
  Company Number: None

PATIENT
  Age: 73 Year
  Sex: Male
  Weight: 57.1 kg

DRUGS (3)
  1. LITHIUM CARBONATE CAP [Suspect]
     Dosage: 300 MG TI
     Route: 048
  2. FLUPHENAZINE [Concomitant]
  3. BENZOTROPINE [Concomitant]

REACTIONS (12)
  - CONSTIPATION [None]
  - DEHYDRATION [None]
  - DEMENTIA [None]
  - DYSURIA [None]
  - HYPERCALCAEMIA [None]
  - HYPERKALAEMIA [None]
  - HYPERPARATHYROIDISM [None]
  - LEUKOCYTOSIS [None]
  - NAUSEA [None]
  - NEUROPATHY [None]
  - RENAL FAILURE [None]
  - VOMITING [None]
